FAERS Safety Report 5745871-1 (Version None)
Quarter: 2008Q2

REPORT INFORMATION
  Report Type: 
  Country: None (occurrence: None)
  Receive Date: 20080520
  Receipt Date: 20080425
  Transmission Date: 20081010
  Serious: Yes (Other)
  Sender: FDA-Public Use
  Company Number: 062-20785-08031608

PATIENT
  Age: 76 Year
  Sex: Male

DRUGS (2)
  1. THALIDOMIDE [Suspect]
     Indication: MULTIPLE MYELOMA
     Dosage: 100 MG, DAILY, ORAL
     Route: 048
     Dates: start: 20080201
  2. ACETYLSALIYCLIC ACID        (ACETYLSALIYCLIC ACID) [Concomitant]

REACTIONS (2)
  - RETINAL OEDEMA [None]
  - VISION BLURRED [None]
